FAERS Safety Report 7866094-6 (Version None)
Quarter: 2011Q4

REPORT INFORMATION
  Report Type: 
  Country: None (occurrence: None)
  Receive Date: 20111028
  Receipt Date: 20110421
  Transmission Date: 20120403
  Serious: No
  Sender: FDA-Public Use
  Company Number: US-GLAXOSMITHKLINE-A0924008A

PATIENT
  Age: 69 Year
  Sex: Female

DRUGS (9)
  1. ALPRAZOLAM [Concomitant]
  2. ADVAIR DISKUS 100/50 [Suspect]
     Indication: CHRONIC OBSTRUCTIVE PULMONARY DISEASE
     Dosage: 1PUFF TWICE PER DAY
     Route: 055
     Dates: start: 20110302, end: 20110407
  3. BUPROPION HCL [Concomitant]
  4. LISINOPRIL [Concomitant]
  5. OMEPRAZOLE [Concomitant]
  6. PROAIR HFA [Concomitant]
  7. SPIRIVA [Concomitant]
  8. XOPENEX [Concomitant]
     Route: 055
  9. METOPROLOL TARTRATE [Concomitant]

REACTIONS (4)
  - DYSPHONIA [None]
  - CANDIDIASIS [None]
  - OROPHARYNGEAL PLAQUE [None]
  - ORAL PAIN [None]
